FAERS Safety Report 4453722-0 (Version None)
Quarter: 2004Q3

REPORT INFORMATION
  Report Type: 
  Country: None (occurrence: None)
  Receive Date: 20040902
  Receipt Date: 20040614
  Transmission Date: 20050211
  Serious: No
  Sender: FDA-Public Use
  Company Number: 200418391BWH

PATIENT
  Age: 64 Year
  Sex: Male

DRUGS (2)
  1. LEVITRA [Suspect]
     Indication: ERECTILE DYSFUNCTION
     Dosage: 10 MG, PRN, ORAL
     Route: 048
  2. PREDNISOLONE [Concomitant]

REACTIONS (2)
  - EJACULATION DELAYED [None]
  - EJACULATION FAILURE [None]
